FAERS Safety Report 16797314 (Version 1)
Quarter: 2019Q3

REPORT INFORMATION
  Report Type: Spontaneous
  Country: US (occurrence: US)
  Receive Date: 20190912
  Receipt Date: 20190912
  Transmission Date: 20191005
  Serious: No
  Sender: FDA-Public Use
  Company Number: US-JNJFOC-20190904193

PATIENT
  Sex: Female

DRUGS (1)
  1. WOMENS ROGAINE UNSCENTED [Suspect]
     Active Substance: MINOXIDIL
     Indication: ALOPECIA
     Dosage: 1/2 CAP FULL DISPENSED INTO CAP
     Route: 061
     Dates: start: 20190825

REACTIONS (3)
  - Wrong technique in product usage process [Unknown]
  - Poor quality product administered [Unknown]
  - Product formulation issue [Unknown]

NARRATIVE: CASE EVENT DATE: 20190825
